FAERS Safety Report 9204391 (Version 3)
Quarter: 2013Q2

REPORT INFORMATION
  Report Type: Spontaneous
  Country: JP (occurrence: JP)
  Receive Date: 20130402
  Receipt Date: 20130620
  Transmission Date: 20140414
  Serious: No
  Sender: FDA-Public Use
  Company Number: JP-PFIZER INC-2013099751

PATIENT
  Age: 63 Year
  Sex: Female

DRUGS (6)
  1. PREMARIN [Suspect]
     Dosage: 1 DF, 1X/DAY
     Route: 048
  2. PROVERA [Suspect]
     Dosage: 1 DF, 1X/DAY
     Route: 048
  3. BASEN [Concomitant]
  4. GLACTIV [Concomitant]
  5. AMLODIN [Concomitant]
  6. ESTRANA [Concomitant]
     Route: 003

REACTIONS (1)
  - Gastrointestinal disorder [Unknown]
